FAERS Safety Report 7285271-9 (Version None)
Quarter: 2011Q1

REPORT INFORMATION
  Report Type: 
  Country: None (occurrence: None)
  Receive Date: 20110210
  Receipt Date: 20110207
  Transmission Date: 20110831
  Serious: Yes (Death, Other)
  Sender: FDA-Public Use
  Company Number: FR-PFIZER INC-2010165825

PATIENT
  Age: 77 Year
  Sex: Male

DRUGS (2)
  1. FUCIDINE CAP [Interacting]
     Dosage: UNK
  2. SIMVASTATIN [Suspect]
     Dosage: UNK

REACTIONS (3)
  - DEATH [None]
  - DRUG INTERACTION [None]
  - RHABDOMYOLYSIS [None]
